FAERS Safety Report 24653272 (Version 3)
Quarter: 2024Q4

REPORT INFORMATION
  Report Type: Spontaneous
  Country: US (occurrence: US)
  Receive Date: 20241122
  Receipt Date: 20241216
  Transmission Date: 20250114
  Serious: Yes (Other)
  Sender: PFIZER
  Company Number: US-PFIZER INC-202400305855

PATIENT
  Age: 56 Year
  Sex: Male

DRUGS (1)
  1. VELSIPITY [Suspect]
     Active Substance: ETRASIMOD ARGININE
     Dosage: 2 MG

REACTIONS (4)
  - Type 2 diabetes mellitus [Unknown]
  - Diabetic eye disease [Unknown]
  - Blood glucose abnormal [Unknown]
  - Rash [Unknown]
